FAERS Safety Report 7987711-6 (Version None)
Quarter: 2011Q4

REPORT INFORMATION
  Report Type: 
  Country: None (occurrence: None)
  Receive Date: 20111216
  Receipt Date: 20110523
  Transmission Date: 20120403
  Serious: No
  Sender: FDA-Public Use
  Company Number: US-BRISTOL-MYERS SQUIBB COMPANY-15705700

PATIENT
  Age: 11 Year
  Sex: Male
  Weight: 30 kg

DRUGS (5)
  1. CLONIDINE [Suspect]
     Dosage: AT BED TIME
     Route: 048
  2. ABILIFY [Suspect]
     Indication: ATTENTION DEFICIT/HYPERACTIVITY DISORDER
     Dosage: ABOUT A MONTH 2MG
     Route: 048
     Dates: start: 20110322
  3. ABILIFY [Suspect]
     Indication: FOETAL ALCOHOL SYNDROME
     Dosage: ABOUT A MONTH 2MG
     Route: 048
     Dates: start: 20110322
  4. ABILIFY [Suspect]
     Indication: AFFECTIVE DISORDER
     Dosage: ABOUT A MONTH 2MG
     Route: 048
     Dates: start: 20110322
  5. ADDERALL XR 10 [Suspect]
     Route: 048

REACTIONS (1)
  - DRUG DISPENSING ERROR [None]
